FAERS Safety Report 25126269 (Version 1)
Quarter: 2025Q1

REPORT INFORMATION
  Report Type: Spontaneous
  Country: US (occurrence: US)
  Receive Date: 20250327
  Receipt Date: 20250327
  Transmission Date: 20250408
  Serious: No
  Sender: SANOFI AVENTIS
  Company Number: US-SA-2025SA088635

PATIENT
  Sex: Female

DRUGS (10)
  1. DUPIXENT [Suspect]
     Active Substance: DUPILUMAB
     Indication: Nasal polyps
  2. ALENDRONATE [Concomitant]
     Active Substance: ALENDRONATE SODIUM
  3. ESTRING [Concomitant]
     Active Substance: ESTRADIOL
  4. HYDROXYCHLOROQUINE SULFATE [Concomitant]
     Active Substance: HYDROXYCHLOROQUINE SULFATE
  5. NAPROXEN [Concomitant]
     Active Substance: NAPROXEN
  6. NUCALA [Concomitant]
     Active Substance: MEPOLIZUMAB
  7. PREDNISONE [Concomitant]
     Active Substance: PREDNISONE
  8. TRETINOIN [Concomitant]
     Active Substance: TRETINOIN
  9. TRIAMCINOLONE [Concomitant]
     Active Substance: TRIAMCINOLONE
  10. VENTOLIN HFA [Concomitant]
     Active Substance: ALBUTEROL SULFATE

REACTIONS (1)
  - Injection site urticaria [Recovered/Resolved]
